FAERS Safety Report 11311765 (Version 2)
Quarter: 2015Q3

REPORT INFORMATION
  Report Type: Report from Study
  Country: US (occurrence: US)
  Receive Date: 20150727
  Receipt Date: 20150918
  Transmission Date: 20151125
  Serious: Yes (Hospitalization, Other)
  Sender: FDA-Public Use
  Company Number: US-GILEAD-2015-0164910

PATIENT
  Age: 64 Year
  Sex: Female

DRUGS (13)
  1. AMBRISENTAN [Suspect]
     Active Substance: AMBRISENTAN
     Indication: CONNECTIVE TISSUE DISORDER
  2. ASPIRIN                            /00002701/ [Concomitant]
     Active Substance: ASPIRIN
  3. SYNTHROID [Concomitant]
     Active Substance: LEVOTHYROXINE SODIUM
  4. AMBRISENTAN [Suspect]
     Active Substance: AMBRISENTAN
     Indication: PULMONARY ARTERIAL HYPERTENSION
     Dosage: 10 MG, QD
     Route: 065
     Dates: start: 20100920
  5. CALCIUM [Concomitant]
     Active Substance: CALCIUM
  6. PREVACID [Concomitant]
     Active Substance: LANSOPRAZOLE
  7. GLUCOSAMINE [Concomitant]
     Active Substance: GLUCOSAMINE
  8. ADCIRCA [Suspect]
     Active Substance: TADALAFIL
     Indication: PRODUCT USED FOR UNKNOWN INDICATION
     Route: 065
  9. TYVASO [Suspect]
     Active Substance: TREPROSTINIL
     Indication: PRODUCT USED FOR UNKNOWN INDICATION
     Route: 065
  10. VITAMIN D                          /00107901/ [Concomitant]
     Active Substance: ERGOCALCIFEROL
  11. CARTEOLOL [Concomitant]
     Active Substance: CARTEOLOL
  12. FUROSEMIDE. [Concomitant]
     Active Substance: FUROSEMIDE
  13. B COMPLEX                          /00322001/ [Concomitant]

REACTIONS (1)
  - Pneumonia [Recovered/Resolved]
